FAERS Safety Report 8437334-X (Version None)
Quarter: 2012Q2

REPORT INFORMATION
  Report Type: 
  Country: None (occurrence: None)
  Receive Date: 20120614
  Receipt Date: 20120310
  Transmission Date: 20120825
  Serious: No
  Sender: FDA-Public Use
  Company Number: US-AMGEN-USASP2012015806

PATIENT
  Age: 59 Year
  Sex: Female

DRUGS (1)
  1. PROLIA [Suspect]
     Indication: OSTEOPOROSIS POSTMENOPAUSAL
     Dosage: UNK
     Dates: start: 20110301

REACTIONS (6)
  - FALL [None]
  - MUSCLE SPASMS [None]
  - VITAMIN B COMPLEX DEFICIENCY [None]
  - PAIN IN EXTREMITY [None]
  - MUSCLE STRAIN [None]
  - TENDONITIS [None]
